FAERS Safety Report 8967277 (Version 1)
Quarter: 2012Q4

REPORT INFORMATION
  Report Type: 
  Country: US (occurrence: US)
  Receive Date: 20121214
  Receipt Date: 20121214
  Transmission Date: 20130627
  Serious: No
  Sender: FDA-Public Use
  Company Number: US-GLAXOSMITHKLINE-A0979505A

PATIENT
  Age: 47 Year
  Sex: Male

DRUGS (4)
  1. FLONASE [Suspect]
     Indication: SINUS DISORDER
     Route: 045
     Dates: start: 2011, end: 201112
  2. ADVAIR [Concomitant]
  3. ATROVENT [Concomitant]
  4. VENTOLIN [Concomitant]

REACTIONS (3)
  - Oropharyngeal pain [Unknown]
  - Epistaxis [Unknown]
  - Drug ineffective [Unknown]
